FAERS Safety Report 13654722 (Version 1)
Quarter: 2017Q2

REPORT INFORMATION
  Report Type: Spontaneous
  Country: IE (occurrence: IE)
  Receive Date: 20170615
  Receipt Date: 20170615
  Transmission Date: 20170830
  Serious: Yes (Other)
  Sender: FDA-Public Use
  Company Number: IE-JNJFOC-20170611093

PATIENT

DRUGS (4)
  1. INFLIXIMAB, RECOMBINANT [Suspect]
     Active Substance: INFLIXIMAB
     Indication: INFLAMMATORY BOWEL DISEASE
     Route: 042
  2. 6-MP [Concomitant]
     Active Substance: MERCAPTOPURINE
     Dosage: 1-1.5 MG/KG
     Route: 065
  3. AZATHIOPRINE. [Concomitant]
     Active Substance: AZATHIOPRINE
     Dosage: 2-2.5 MG/KG
     Route: 065
  4. 5-AMINOSALICYLIC ACID [Concomitant]
     Active Substance: MESALAMINE
     Route: 065

REACTIONS (3)
  - Gastrointestinal neoplasm [Unknown]
  - White blood cell count decreased [Unknown]
  - Neutrophil count decreased [Unknown]
